FAERS Safety Report 9897417 (Version 6)
Quarter: 2014Q2

REPORT INFORMATION
  Report Type: Spontaneous
  Country: GB (occurrence: GB)
  Receive Date: 20140214
  Receipt Date: 20140418
  Transmission Date: 20141212
  Serious: Yes (Hospitalization, Other)
  Sender: FDA-Public Use
  Company Number: GB-JNJFOC-20140206015

PATIENT
  Age: 61 Year
  Sex: Male
  Weight: 96.6 kg

DRUGS (3)
  1. XARELTO [Suspect]
     Indication: EMBOLISM VENOUS
     Route: 048
     Dates: start: 201307
  2. XARELTO [Suspect]
     Indication: THROMBOSIS PROPHYLAXIS
     Route: 048
     Dates: start: 201307
  3. DRONEDARONE [Interacting]
     Indication: ARRHYTHMIA
     Route: 065
     Dates: start: 201210, end: 201401

REACTIONS (4)
  - Cardiac disorder [Unknown]
  - Palpitations [Unknown]
  - Liver function test abnormal [Recovered/Resolved]
  - Drug interaction [Unknown]
